FAERS Safety Report 16609632 (Version 1)
Quarter: 2019Q3

REPORT INFORMATION
  Report Type: Spontaneous
  Country: DE (occurrence: DE)
  Receive Date: 20190722
  Receipt Date: 20190722
  Transmission Date: 20191004
  Serious: Yes (Hospitalization)
  Sender: FDA-Public Use
  Company Number: DE-NOVOPROD-672681

PATIENT
  Age: 77 Year
  Sex: Male
  Weight: 72 kg

DRUGS (12)
  1. BERODUAL [Concomitant]
     Active Substance: FENOTEROL HYDROBROMIDE\IPRATROPIUM BROMIDE
     Dosage: UNK (2 STROKES IF REQUIRED, METERED DOSE INHALER)
     Route: 055
     Dates: end: 20180309
  2. METAMIZOLE [Concomitant]
     Active Substance: METAMIZOLE
     Dosage: 30 GTT, 30
     Route: 048
     Dates: end: 20180309
  3. DAXAS [Concomitant]
     Active Substance: ROFLUMILAST
     Dosage: 500 ?G, 0-0-0.5-0, TABLETS
     Route: 048
     Dates: end: 20180309
  4. FOSTER [Concomitant]
     Active Substance: BECLOMETHASONE\FORMOTEROL
     Dosage: 100|6 ?G, BEI BEDARF 1-0-1-0, DOSIERAEROSOL
     Route: 055
     Dates: end: 20180309
  5. PANTOPRAZOLE [Concomitant]
     Active Substance: PANTOPRAZOLE
     Dosage: 20 MG, QD(1-0-0-0)
     Route: 048
     Dates: end: 20180309
  6. METOPROLOL. [Concomitant]
     Active Substance: METOPROLOL
     Dosage: 47.5 MG, 1-0-1-0, RETARD-TABLETS
     Route: 048
     Dates: end: 20180309
  7. ACTRAPHANE [Suspect]
     Active Substance: INSULIN HUMAN
     Indication: PRODUCT USED FOR UNKNOWN INDICATION
     Dosage: 30|70 IU, 36-10-16-0
     Route: 058
     Dates: end: 20180309
  8. VELMETIA [Suspect]
     Active Substance: METFORMIN\SITAGLIPTIN
     Indication: PRODUCT USED FOR UNKNOWN INDICATION
     Dosage: 50|1000 MG, 1-0-1-0, TABLETS
     Route: 048
     Dates: end: 20180309
  9. TILIDIN [Concomitant]
     Active Substance: NALOXONE HYDROCHLORIDE\TILIDINE HYDROCHLORIDE
     Dosage: 50|4 MG, 0-0-0-1, RETARD-TABLETS
     Route: 048
     Dates: end: 20180309
  10. FORXIGA [Suspect]
     Active Substance: DAPAGLIFLOZIN
     Indication: PRODUCT USED FOR UNKNOWN INDICATION
     Dosage: 10 MG, QD(1-0-0-0)
     Route: 048
     Dates: end: 20180309
  11. SPIRIVA RESPIMAT [Concomitant]
     Active Substance: TIOTROPIUM BROMIDE
     Dosage: 2.5 ?G, 1-0-1-0 DOSAGE AEROSOL
     Route: 055
     Dates: end: 20180309
  12. TORASEMID [Concomitant]
     Active Substance: TORSEMIDE
     Dosage: 10 MG, BID(1-1-0-0)
     Route: 048
     Dates: end: 20180309

REACTIONS (6)
  - General physical health deterioration [Unknown]
  - Dehydration [Unknown]
  - Disturbance in attention [Unknown]
  - Diabetic coma [Unknown]
  - Product administration error [Unknown]
  - Hypoglycaemia [Unknown]
